FAERS Safety Report 12409052 (Version 8)
Quarter: 2017Q1

REPORT INFORMATION
  Report Type: Report from Study
  Country: BR (occurrence: BR)
  Receive Date: 20160526
  Receipt Date: 20170204
  Transmission Date: 20170428
  Serious: Yes (Hospitalization, Other)
  Sender: FDA-Public Use
  Company Number: PHHY2016BR045443

PATIENT
  Age: 60 Year
  Sex: Female
  Weight: 58 kg

DRUGS (2)
  1. CALCIUM [Concomitant]
     Active Substance: CALCIUM
     Indication: BONE DISORDER
     Dosage: UNK
     Route: 065
     Dates: start: 2013
  2. AFINITOR [Suspect]
     Active Substance: EVEROLIMUS
     Indication: BREAST CANCER METASTATIC
     Dosage: 1 DF OF 10 MG, QD
     Route: 048
     Dates: start: 20160314

REACTIONS (32)
  - Skin lesion [Not Recovered/Not Resolved]
  - Anger [Unknown]
  - Fluid intake reduced [Unknown]
  - Sleep disorder due to general medical condition, insomnia type [Unknown]
  - Stomatitis [Unknown]
  - Abdominal discomfort [Recovering/Resolving]
  - Confusional state [Unknown]
  - Blood urine present [Unknown]
  - Decreased appetite [Not Recovered/Not Resolved]
  - Abdominal pain [Unknown]
  - General physical health deterioration [Unknown]
  - Pruritus generalised [Recovering/Resolving]
  - Blood calcium decreased [Unknown]
  - Arthralgia [Unknown]
  - Asthenia [Recovered/Resolved]
  - Aptyalism [Unknown]
  - Oral disorder [Recovering/Resolving]
  - Musculoskeletal stiffness [Unknown]
  - Dysuria [Unknown]
  - Spinal osteoarthritis [Unknown]
  - Cough [Not Recovered/Not Resolved]
  - Contusion [Recovering/Resolving]
  - Nausea [Recovering/Resolving]
  - Mouth injury [Recovering/Resolving]
  - Dry mouth [Not Recovered/Not Resolved]
  - Arthropathy [Unknown]
  - Back pain [Recovering/Resolving]
  - Urinary tract infection [Unknown]
  - Urinary tract pain [Unknown]
  - Micturition frequency decreased [Unknown]
  - Spinal pain [Unknown]
  - Pain [Unknown]

NARRATIVE: CASE EVENT DATE: 201603
